FAERS Safety Report 9059182 (Version 1)
Quarter: 2013Q1

REPORT INFORMATION
  Report Type: Spontaneous
  Country: US (occurrence: US)
  Receive Date: 20130211
  Receipt Date: 20130211
  Transmission Date: 20140127
  Serious: No
  Sender: FDA-Public Use
  Company Number: US-BRISTOL-MYERS SQUIBB COMPANY-17138132

PATIENT
  Age: 74 Year
  Sex: Female

DRUGS (3)
  1. GLUCOPHAGE [Suspect]
     Dosage: 1 DF:2000 UNITS
  2. LANTUS [Suspect]
     Indication: TYPE 2 DIABETES MELLITUS
     Dosage: 1DF:20 UNITS?DOSE CHANGED TO 15 UNITS
     Route: 058
     Dates: start: 201102
  3. GLYNASE [Suspect]
     Dosage: 1DF: 60 UNITS

REACTIONS (2)
  - Rash [Unknown]
  - Blood glucose increased [Unknown]
